FAERS Safety Report 5191776-7 (Version None)
Quarter: 2006Q4

REPORT INFORMATION
  Report Type: 
  Country: None (occurrence: None)
  Receive Date: 20061220
  Receipt Date: 20061208
  Transmission Date: 20070319
  Serious: Yes (Hospitalization)
  Sender: FDA-Public Use
  Company Number: 2006BI018030

PATIENT
  Sex: Female

DRUGS (2)
  1. NATALIZUMAB [Suspect]
     Indication: MULTIPLE SCLEROSIS
     Dosage: 300 MG; QM; IV
     Route: 042
     Dates: start: 20060101
  2. DIURETIC [Concomitant]

REACTIONS (8)
  - CONFUSIONAL STATE [None]
  - FALL [None]
  - FOOT FRACTURE [None]
  - HYPOKALAEMIA [None]
  - JAUNDICE [None]
  - METABOLIC ACIDOSIS [None]
  - MUSCLE SPASMS [None]
  - SHOCK [None]
